FAERS Safety Report 8829752 (Version 2)
Quarter: 2013Q2

REPORT INFORMATION
  Report Type: Report from Study
  Country: CA (occurrence: CA)
  Receive Date: 20121008
  Receipt Date: 20130529
  Transmission Date: 20140414
  Serious: Yes (Hospitalization)
  Sender: FDA-Public Use
  Company Number: CA-JNJFOC-20120912845

PATIENT
  Sex: Male
  Weight: 46.8 kg

DRUGS (2)
  1. REMICADE [Suspect]
     Indication: CROHN^S DISEASE
     Dosage: DOSE: ALSO REPORTED AS 5 MG/KG EVERY 8 WEEKS
     Route: 042
     Dates: start: 20120802
  2. REMICADE [Suspect]
     Indication: CROHN^S DISEASE
     Dosage: DOSE: ALSO REPORTED AS 10 MG/KG EVERY 4 WEEKS
     Route: 042

REACTIONS (2)
  - Anal fistula [Recovering/Resolving]
  - Abscess [Unknown]
